FAERS Safety Report 8455813-6 (Version None)
Quarter: 2012Q2

REPORT INFORMATION
  Report Type: 
  Country: None (occurrence: None)
  Receive Date: 20120613
  Receipt Date: 20120606
  Transmission Date: 20120825
  Serious: No
  Sender: FDA-Public Use
  Company Number: 2012SP027987

PATIENT
  Age: 67 Year
  Sex: Female

DRUGS (1)
  1. POSACONAZOLE [Suspect]
     Indication: ASPERGILLOSIS

REACTIONS (3)
  - MYELOID LEUKAEMIA [None]
  - DISEASE PROGRESSION [None]
  - PNEUMONIA FUNGAL [None]
